FAERS Safety Report 18488397 (Version 2)
Quarter: 2021Q1

REPORT INFORMATION
  Report Type: Spontaneous
  Country: CA (occurrence: CA)
  Receive Date: 20201110
  Receipt Date: 20210112
  Transmission Date: 20210419
  Serious: Yes (Other)
  Sender: FDA-Public Use
  Company Number: CA-JNJFOC-20201108253

PATIENT
  Age: 26 Year
  Sex: Male
  Weight: 76 kg

DRUGS (2)
  1. INFLIXIMAB, RECOMBINANT [Suspect]
     Active Substance: INFLIXIMAB
     Indication: CROHN^S DISEASE
     Route: 042
  2. INFLIXIMAB, RECOMBINANT [Suspect]
     Active Substance: INFLIXIMAB
     Route: 042

REACTIONS (18)
  - Therapeutic product effect incomplete [Recovered/Resolved]
  - Gastric disorder [Unknown]
  - Inappropriate schedule of product administration [Unknown]
  - Drug level below therapeutic [Unknown]
  - Infection [Unknown]
  - Rash erythematous [Recovered/Resolved]
  - Body temperature fluctuation [Unknown]
  - General physical health deterioration [Unknown]
  - Rhinorrhoea [Unknown]
  - Intentional product use issue [Recovered/Resolved]
  - Haemoptysis [Unknown]
  - Productive cough [Unknown]
  - Pyrexia [Unknown]
  - Off label use [Recovered/Resolved]
  - Cough [Unknown]
  - Condition aggravated [Recovered/Resolved]
  - Lupus-like syndrome [Unknown]
  - Influenza [Unknown]
